FAERS Safety Report 18184544 (Version 1)
Quarter: 2020Q3

REPORT INFORMATION
  Report Type: Spontaneous
  Country: FR (occurrence: FR)
  Receive Date: 20200824
  Receipt Date: 20200824
  Transmission Date: 20201103
  Serious: Yes (Death)
  Sender: FDA-Public Use
  Company Number: FR-ROCHE-2663116

PATIENT
  Age: 78 Year
  Sex: Male

DRUGS (1)
  1. ROACTEMRA [Suspect]
     Active Substance: TOCILIZUMAB
     Indication: AUTOINFLAMMATORY DISEASE
     Route: 042
     Dates: start: 20200630, end: 20200630

REACTIONS (1)
  - Haemophagocytic lymphohistiocytosis [Fatal]

NARRATIVE: CASE EVENT DATE: 20200709
